FAERS Safety Report 7226086-7 (Version None)
Quarter: 2011Q1

REPORT INFORMATION
  Report Type: 
  Country: None (occurrence: None)
  Receive Date: 20110113
  Receipt Date: 20110110
  Transmission Date: 20110831
  Serious: Yes (Other)
  Sender: FDA-Public Use
  Company Number: US-AMGEN-USASP2011001383

PATIENT

DRUGS (13)
  1. NOVOLOG [Concomitant]
  2. ENBREL [Suspect]
     Indication: RHEUMATOID ARTHRITIS
     Dosage: 50 MG, QWK
     Dates: start: 20070101, end: 20110106
  3. NEXIUM [Concomitant]
  4. FLUOXETINE [Concomitant]
  5. LISINOPRIL [Concomitant]
  6. LANTUS [Concomitant]
  7. HYDROXYCHLOROQUINE SULFATE [Concomitant]
  8. HYDROCODONE BITARTRATE AND ACETAMINOPHEN [Concomitant]
  9. LASIX [Concomitant]
  10. FINASTERIDE [Concomitant]
  11. MIRAPEX                            /01356401/ [Concomitant]
  12. CLOTRIMAZOLE [Concomitant]
  13. HYDROXYZINE [Concomitant]

REACTIONS (1)
  - LUNG NEOPLASM MALIGNANT [None]
